FAERS Safety Report 11725191 (Version 1)
Quarter: 2015Q4

REPORT INFORMATION
  Report Type: Spontaneous
  Country: US (occurrence: US)
  Receive Date: 20151110
  Receipt Date: 20151110
  Transmission Date: 20160304
  Serious: No
  Sender: FDA-Public Use
  Company Number: US-ELI_LILLY_AND_COMPANY-US201109006044

PATIENT
  Sex: Female

DRUGS (2)
  1. NOVOCAIN [Concomitant]
     Active Substance: PROCAINE HYDROCHLORIDE
  2. FORTEO [Suspect]
     Active Substance: TERIPARATIDE
     Indication: OSTEOPOROSIS
     Dosage: 20 UG, QD
     Route: 065

REACTIONS (3)
  - Dental care [Unknown]
  - Disorientation [Unknown]
  - Dizziness [Recovering/Resolving]
